FAERS Safety Report 6747503-2 (Version None)
Quarter: 2010Q2

REPORT INFORMATION
  Report Type: 
  Country: None (occurrence: None)
  Receive Date: 20100528
  Receipt Date: 20100521
  Transmission Date: 20101027
  Serious: Yes (Other)
  Sender: FDA-Public Use
  Company Number: US-MERCK-1005USA04009

PATIENT
  Age: 24 Month
  Sex: Male

DRUGS (2)
  1. SINGULAIR [Suspect]
     Indication: SINUSITIS
     Route: 048
  2. SINGULAIR [Suspect]
     Indication: WHEEZING
     Route: 048

REACTIONS (5)
  - ABNORMAL BEHAVIOUR [None]
  - AGGRESSION [None]
  - MOOD ALTERED [None]
  - OFF LABEL USE [None]
  - PHYSICAL ASSAULT [None]
